FAERS Safety Report 15845458 (Version 1)
Quarter: 2019Q1

REPORT INFORMATION
  Report Type: Spontaneous
  Country: US (occurrence: US)
  Receive Date: 20190119
  Receipt Date: 20190119
  Transmission Date: 20190417
  Serious: Yes (Hospitalization, Other)
  Sender: FDA-Public Use
  Company Number: US-DSJP-DSU-2017-147697

PATIENT

DRUGS (1)
  1. BENICAR HCT [Suspect]
     Active Substance: HYDROCHLOROTHIAZIDE\OLMESARTAN MEDOXOMIL
     Indication: PRODUCT USED FOR UNKNOWN INDICATION
     Dosage: 40-12.5 MG, QD
     Route: 048
     Dates: start: 20110821, end: 20150402

REACTIONS (4)
  - Gastroenteritis [Unknown]
  - Sprue-like enteropathy [Recovered/Resolved]
  - Acute kidney injury [Unknown]
  - Hypotension [Unknown]

NARRATIVE: CASE EVENT DATE: 20150209
